FAERS Safety Report 8496824-4 (Version None)
Quarter: 2012Q3

REPORT INFORMATION
  Report Type: 
  Country: None (occurrence: None)
  Receive Date: 20120709
  Receipt Date: 20120622
  Transmission Date: 20120928
  Serious: Yes (Hospitalization)
  Sender: FDA-Public Use
  Company Number: FR-PFIZER INC-2012155331

PATIENT
  Age: 64 Year
  Sex: Female

DRUGS (28)
  1. PARACETAMOL [Concomitant]
     Dosage: UNK
  2. CELEBREX [Suspect]
     Dosage: UNK
     Dates: start: 20120424
  3. DABIGATRAN ETEX MESILAT [Suspect]
     Dosage: UNK
     Dates: start: 20120425
  4. FONDAPARINUX SODIUM [Concomitant]
     Dosage: UNK
  5. PRADAXA [Suspect]
     Dosage: UNK
     Dates: start: 20120425
  6. VANCOMYCIN HYCHLORIDE [Suspect]
     Dosage: UNK
     Dates: start: 20120424
  7. ONDANSETRON HCL [Suspect]
     Dosage: UNK
     Dates: start: 20120424
  8. OXYCONTIN [Suspect]
     Dosage: UNK
     Dates: start: 20120424
  9. OXYCODONE HCL [Suspect]
     Dosage: UNK
     Dates: start: 20120424
  10. ERYTHROMYCIN [Suspect]
     Dosage: UNK
     Dates: start: 20120425
  11. PIASCLEDINE [Concomitant]
  12. TERBUTALINE [Concomitant]
     Dosage: UNK
     Dates: start: 20120427
  13. LEVOFLOXACIN [Concomitant]
     Dosage: UNK
     Dates: start: 20120427
  14. LEVOCETIRIZINE [Concomitant]
     Dosage: UNK
  15. RANITIDINE HYDROCHLORIDE [Suspect]
     Indication: PREMEDICATION
     Dosage: UNK
     Dates: start: 20120423
  16. PYOSTACINE [Suspect]
     Dosage: UNK
  17. ARIXTRA [Concomitant]
     Dosage: UNK
     Dates: start: 20120427
  18. TRAMADOL HYDROCHLORIDE [Concomitant]
  19. LYRICA [Suspect]
     Dosage: UNK
     Dates: start: 20120424
  20. ACUPAN [Suspect]
     Dosage: UNK
     Dates: start: 20120424
  21. KETOPROFEN [Suspect]
     Dosage: UNK
     Dates: start: 20120424
  22. OMEPRAZOLE [Concomitant]
  23. XYZAL [Concomitant]
  24. POLARAMINE [Concomitant]
     Dosage: UNK
     Dates: start: 20120427
  25. LEVOFLOXACIN [Concomitant]
     Dosage: UNK
  26. ATARAX [Suspect]
     Indication: PREMEDICATION
     Dosage: UNK
     Dates: start: 20120423
  27. ZANTAC [Suspect]
     Dosage: UNK
     Dates: start: 20120423
  28. IPRATROPIUM BROMIDE [Concomitant]
     Dosage: UNK
     Dates: start: 20120427

REACTIONS (10)
  - ACUTE GENERALISED EXANTHEMATOUS PUSTULOSIS [None]
  - LIVER INJURY [None]
  - PYREXIA [None]
  - BRONCHOPNEUMOPATHY [None]
  - ERYTHEMA [None]
  - INFLAMMATION [None]
  - SKIN DISORDER [None]
  - OEDEMA [None]
  - CHOLESTASIS [None]
  - TOXIC EPIDERMAL NECROLYSIS [None]
